FAERS Safety Report 23258919 (Version 2)
Quarter: 2023Q4

REPORT INFORMATION
  Report Type: Spontaneous
  Country: US (occurrence: None)
  Receive Date: 20231204
  Receipt Date: 20231214
  Transmission Date: 20240109
  Serious: No
  Sender: FDA-Public Use
  Company Number: 2023A260603

PATIENT

DRUGS (1)
  1. SYMBICORT [Suspect]
     Active Substance: BUDESONIDE\FORMOTEROL FUMARATE DIHYDRATE
     Dosage: 80 UG/INHAL, EVERY 12 HOURS
     Route: 055
     Dates: start: 20230601

REACTIONS (4)
  - Condition aggravated [Unknown]
  - Device use issue [Unknown]
  - Product use in unapproved indication [Unknown]
  - Device malfunction [Unknown]
